FAERS Safety Report 8475374-5 (Version None)
Quarter: 2012Q2

REPORT INFORMATION
  Report Type: 
  Country: None (occurrence: None)
  Receive Date: 20120628
  Receipt Date: 20120614
  Transmission Date: 20120825
  Serious: Yes (Other)
  Sender: FDA-Public Use
  Company Number: US-ELI_LILLY_AND_COMPANY-US201206006147

PATIENT
  Sex: Male

DRUGS (2)
  1. STRATTERA [Suspect]
     Indication: ATTENTION DEFICIT/HYPERACTIVITY DISORDER
     Dosage: 60 MG, QD
     Dates: start: 20120116
  2. STRATTERA [Suspect]
     Dosage: 40 MG, QD

REACTIONS (3)
  - SUICIDAL IDEATION [None]
  - SELF INJURIOUS BEHAVIOUR [None]
  - AGGRESSION [None]
